FAERS Safety Report 4757343-1 (Version None)
Quarter: 2005Q3

REPORT INFORMATION
  Report Type: 
  Country: None (occurrence: None)
  Receive Date: 20050829
  Receipt Date: 20050816
  Transmission Date: 20060218
  Serious: Yes (Hospitalization)
  Sender: FDA-Public Use
  Company Number: 2005116598

PATIENT
  Age: 50 Year
  Sex: Female

DRUGS (2)
  1. VIBRAMYCIN [Suspect]
     Indication: LYME DISEASE
     Dosage: 200 MG (100 MB, BID INTERVAL: EVERY DAY)
     Dates: end: 20050808
  2. ALL OTHER THERAPEUTIC PRODUCTS (ALL OTHER THERAPEUTIC PRODUCTS) [Concomitant]

REACTIONS (3)
  - NEUTROPENIA [None]
  - PYREXIA [None]
  - WHITE BLOOD CELL COUNT DECREASED [None]
